FAERS Safety Report 8358687 (Version 4)
Quarter: 2012Q4

REPORT INFORMATION
  Report Type: 
  Country: MX (occurrence: MX)
  Receive Date: 20120127
  Receipt Date: 20120829
  Transmission Date: 20130627
  Serious: Yes (Death, Hospitalization)
  Sender: FDA-Public Use
  Company Number: PHHY2012MX005955

PATIENT
  Age: 70 None
  Sex: Female

DRUGS (4)
  1. ACLASTA [Suspect]
     Indication: OSTEOPOROSIS
     Dosage: 5 mg, once a year
     Route: 042
     Dates: start: 20110520
  2. COZAAR [Concomitant]
     Indication: HYPERTENSION
     Dosage: 50 mg (1 tablet) per day
  3. INSULINE [Concomitant]
     Indication: DIABETES MELLITUS
     Dosage: 10 UI fast/ 25 intermediate at the morning and 5 fast/ 10 intermediate at night
  4. LEVOTHYROXINE [Concomitant]
     Dosage: 1.5 daily, QD

REACTIONS (12)
  - Renal failure [Fatal]
  - Diabetic complication [Fatal]
  - Fluid retention [Recovered/Resolved]
  - Oedema peripheral [Recovered/Resolved]
  - Respiratory distress [Recovered/Resolved]
  - Swelling [Recovered/Resolved]
  - Pigmentation disorder [Unknown]
  - Chest pain [Unknown]
  - Syncope [Unknown]
  - Nausea [Unknown]
  - Vomiting [Unknown]
  - Movement disorder [Not Recovered/Not Resolved]
